FAERS Safety Report 13477812 (Version 1)
Quarter: 2017Q2

REPORT INFORMATION
  Report Type: Report from Study
  Country: JP (occurrence: JP)
  Receive Date: 20170425
  Receipt Date: 20170425
  Transmission Date: 20170830
  Serious: Yes (Other)
  Sender: FDA-Public Use
  Company Number: JP-PFIZER INC-2017008241

PATIENT
  Age: 56 Year
  Sex: Male

DRUGS (1)
  1. SUNITINIB MALATE. [Suspect]
     Active Substance: SUNITINIB MALATE
     Indication: GASTROINTESTINAL STROMAL TUMOUR
     Dosage: 50 MG, 6-WEEK CYCLE (DAILY IN THE MORNING, FOR 4 CONSECUTIVE WEEKS, FOLLOWED BY A 2-WEEK OFF)
     Route: 048

REACTIONS (1)
  - Hyperammonaemia [Not Recovered/Not Resolved]
